FAERS Safety Report 6085662-8 (Version None)
Quarter: 2009Q1

REPORT INFORMATION
  Report Type: 
  Country: None (occurrence: None)
  Receive Date: 20090220
  Receipt Date: 20090212
  Transmission Date: 20090719
  Serious: Yes (Hospitalization)
  Sender: FDA-Public Use
  Company Number: FR-ROCHE-606685

PATIENT
  Sex: Male
  Weight: 76 kg

DRUGS (13)
  1. METHOXY POLYETHYLENE GLYCOL-EPOETIN BETA [Suspect]
     Dosage: FORM PRE-FILLED SYRINGE
     Route: 058
     Dates: start: 20081006, end: 20081031
  2. ATHYMIL [Concomitant]
  3. NOCTRAN [Concomitant]
  4. SPECIAFOLDINE [Concomitant]
  5. VIT B12 [Concomitant]
  6. TOPRAL [Concomitant]
     Dates: start: 20040101
  7. FUNGIZONE [Concomitant]
     Dates: start: 20050401
  8. IRBESARTAN [Concomitant]
     Dates: start: 20060101
  9. BETASERC [Concomitant]
     Dates: start: 20060101
  10. DEDROGYL [Concomitant]
     Dosage: TDD : 150 G/XM
  11. SERETIDE [Concomitant]
     Dosage: TDD : 20 BOUL/JOUR
     Dates: start: 20070701
  12. ALLOPURINOL [Concomitant]
     Dates: start: 20070101
  13. TEMERIT [Concomitant]
     Dates: start: 20080101

REACTIONS (1)
  - GASTRIC CANCER [None]
